FAERS Safety Report 6387002-3 (Version None)
Quarter: 2009Q4

REPORT INFORMATION
  Report Type: 
  Country: None (occurrence: None)
  Receive Date: 20091002
  Receipt Date: 20090924
  Transmission Date: 20100525
  Serious: Yes (Death, Hospitalization)
  Sender: FDA-Public Use
  Company Number: CO-BRISTOL-MYERS SQUIBB COMPANY-14793103

PATIENT
  Age: 55 Year
  Sex: Male

DRUGS (3)
  1. SPRYCEL [Suspect]
     Indication: CHRONIC MYELOID LEUKAEMIA
  2. HYDROXYUREA [Suspect]
  3. ALLOPURINOL [Concomitant]

REACTIONS (3)
  - ADVERSE EVENT [None]
  - DEATH [None]
  - MEDICATION ERROR [None]
